FAERS Safety Report 6755772-8 (Version None)
Quarter: 2010Q2

REPORT INFORMATION
  Report Type: 
  Country: None (occurrence: None)
  Receive Date: 20100524
  Receipt Date: 20100302
  Transmission Date: 20101027
  Serious: No
  Sender: FDA-Public Use
  Company Number: 008144

PATIENT
  Sex: Female

DRUGS (1)
  1. CIMZIA [Suspect]
     Indication: CROHN'S DISEASE
     Dosage: SEE IMAGE
     Route: 058

REACTIONS (6)
  - CROHN'S DISEASE [None]
  - DRUG INEFFECTIVE [None]
  - GASTROINTESTINAL PAIN [None]
  - INJECTION SITE PAIN [None]
  - PRODUCT QUALITY ISSUE [None]
  - THERAPY REGIMEN CHANGED [None]
